FAERS Safety Report 19100918 (Version 1)
Quarter: 2021Q2

REPORT INFORMATION
  Report Type: Other
  Country: GB (occurrence: GB)
  Receive Date: 20210407
  Receipt Date: 20210407
  Transmission Date: 20210717
  Serious: No
  Sender: FDA-Public Use
  Company Number: GB-LUPIN PHARMACEUTICALS INC.-2021-03971

PATIENT
  Sex: Female
  Weight: 56.7 kg

DRUGS (4)
  1. LEVETIRACETAM. [Suspect]
     Active Substance: LEVETIRACETAM
     Indication: EPILEPSY
     Dosage: 500 MILLIGRAM, BID
     Route: 065
  2. BISOPROLOL [Concomitant]
     Active Substance: BISOPROLOL
     Indication: ARRHYTHMIA
     Dosage: 2.5 MILLIGRAM
     Route: 065
  3. BISOPROLOL [Concomitant]
     Active Substance: BISOPROLOL
     Indication: HYPOTENSION
     Dosage: UNK
     Route: 065
  4. DESOGESTREL [Suspect]
     Active Substance: DESOGESTREL
     Indication: HEAVY MENSTRUAL BLEEDING
     Dosage: 75 MICROGRAM
     Route: 065

REACTIONS (2)
  - Alopecia [Unknown]
  - Dizziness [Unknown]
